FAERS Safety Report 21514207 (Version 1)
Quarter: 2022Q4

REPORT INFORMATION
  Report Type: Spontaneous
  Country: CN (occurrence: CN)
  Receive Date: 20221027
  Receipt Date: 20221027
  Transmission Date: 20230113
  Serious: Yes (Other)
  Sender: FDA-Public Use
  Company Number: CN-OTSUKA-2022_049533

PATIENT
  Age: 5 Year
  Sex: Male
  Weight: 20 kg

DRUGS (9)
  1. BUSULFAN [Suspect]
     Active Substance: BUSULFAN
     Indication: Leukodystrophy
     Dosage: 0.8-1 MG/KG  EVERY 6 H FOR 4 DAYS (TOTAL DOSE, 12.8-16 MG/KG)
     Route: 042
  2. BUSULFAN [Suspect]
     Active Substance: BUSULFAN
     Indication: Bone marrow conditioning regimen
  3. FLUDARABINE [Suspect]
     Active Substance: FLUDARABINE PHOSPHATE
     Indication: Leukodystrophy
     Dosage: 30 MG/M2 FOR 5 DAYS (TOTAL DOSE 150 MG/M2)
     Route: 042
  4. FLUDARABINE [Suspect]
     Active Substance: FLUDARABINE PHOSPHATE
     Indication: Bone marrow conditioning regimen
  5. CYCLOPHOSPHAMIDE [Suspect]
     Active Substance: CYCLOPHOSPHAMIDE
     Indication: Leukodystrophy
     Dosage: 50 MG/KG, QD FOR 2 DAYS (TOTAL DOSE, 100 MG/KG)
     Route: 042
  6. CYCLOPHOSPHAMIDE [Suspect]
     Active Substance: CYCLOPHOSPHAMIDE
     Indication: Bone marrow conditioning regimen
  7. ANTI-THYMOCYTE GLOBULIN (RABBIT) NOS [Suspect]
     Active Substance: LAPINE T-LYMPHOCYTE IMMUNE GLOBULIN
     Indication: Leukodystrophy
     Dosage: 5 MG/KG
     Route: 065
  8. ANTI-THYMOCYTE GLOBULIN (RABBIT) NOS [Suspect]
     Active Substance: LAPINE T-LYMPHOCYTE IMMUNE GLOBULIN
     Indication: Bone marrow conditioning regimen
  9. TACROLIMUS [Concomitant]
     Active Substance: TACROLIMUS
     Indication: Prophylaxis against graft versus host disease
     Dosage: UNK
     Route: 048

REACTIONS (5)
  - Autoimmune haemolytic anaemia [Unknown]
  - Pneumonia acinetobacter [Unknown]
  - Cytomegalovirus viraemia [Unknown]
  - Product use in unapproved indication [Unknown]
  - Product use issue [Unknown]
